FAERS Safety Report 21316481 (Version 3)
Quarter: 2023Q1

REPORT INFORMATION
  Report Type: Report from Study
  Country: JP (occurrence: JP)
  Receive Date: 20220910
  Receipt Date: 20230219
  Transmission Date: 20230418
  Serious: Yes (Hospitalization, Other)
  Sender: FDA-Public Use
  Company Number: JP-TAKEDA-2022TJP072231

PATIENT
  Age: 34 Year
  Sex: Male
  Weight: 70.3 kg

DRUGS (16)
  1. LUPRON DEPOT [Suspect]
     Active Substance: LEUPROLIDE ACETATE
     Indication: Bulbospinal muscular atrophy congenital
     Dosage: 11.25 MILLIGRAM, Q3MONTHS
     Route: 058
     Dates: start: 20180502
  2. TRESIBA [Concomitant]
     Active Substance: INSULIN DEGLUDEC
     Indication: Product used for unknown indication
     Dosage: 16 INTERNATIONAL UNIT
     Route: 065
     Dates: start: 20180726, end: 20180726
  3. TRESIBA [Concomitant]
     Active Substance: INSULIN DEGLUDEC
     Indication: Product used for unknown indication
     Dosage: 22 INTERNATIONAL UNIT
     Route: 065
     Dates: start: 20180727, end: 20180729
  4. TRESIBA [Concomitant]
     Active Substance: INSULIN DEGLUDEC
     Indication: Product used for unknown indication
     Dosage: 26 INTERNATIONAL UNIT
     Route: 065
     Dates: start: 20180730, end: 20180814
  5. TRESIBA [Concomitant]
     Active Substance: INSULIN DEGLUDEC
     Indication: Product used for unknown indication
     Dosage: 18 INTERNATIONAL UNIT
     Route: 065
     Dates: start: 20180815, end: 20190312
  6. TRESIBA [Concomitant]
     Active Substance: INSULIN DEGLUDEC
     Indication: Product used for unknown indication
     Dosage: 16 INTERNATIONAL UNIT
     Route: 065
     Dates: start: 20190313, end: 20190521
  7. TRESIBA [Concomitant]
     Active Substance: INSULIN DEGLUDEC
     Indication: Product used for unknown indication
     Dosage: 12 INTERNATIONAL UNIT
     Route: 065
     Dates: start: 20190522
  8. HUMALOG [Concomitant]
     Active Substance: INSULIN LISPRO
     Indication: Product used for unknown indication
     Dosage: 15 INTERNATIONAL UNIT
     Route: 065
     Dates: start: 20180725, end: 20180725
  9. HUMALOG [Concomitant]
     Active Substance: INSULIN LISPRO
     Indication: Product used for unknown indication
     Dosage: 21 INTERNATIONAL UNIT
     Route: 065
     Dates: start: 20180726, end: 20180726
  10. HUMALOG [Concomitant]
     Active Substance: INSULIN LISPRO
     Indication: Product used for unknown indication
     Dosage: 23 INTERNATIONAL UNIT
     Route: 065
     Dates: start: 20180727, end: 20181009
  11. HUMALOG [Concomitant]
     Active Substance: INSULIN LISPRO
     Indication: Product used for unknown indication
     Dosage: 16 INTERNATIONAL UNIT
     Route: 065
     Dates: start: 20181010, end: 20181127
  12. HUMALOG [Concomitant]
     Active Substance: INSULIN LISPRO
     Indication: Product used for unknown indication
     Dosage: 10 INTERNATIONAL UNIT
     Route: 065
     Dates: start: 20181128, end: 20190115
  13. HUMULIN R [Concomitant]
     Active Substance: INSULIN HUMAN
     Indication: Product used for unknown indication
     Dosage: 18 INTERNATIONAL UNIT
     Route: 065
     Dates: start: 20180725, end: 20180725
  14. CANAGLIFLOZIN [Concomitant]
     Active Substance: CANAGLIFLOZIN
     Indication: Product used for unknown indication
     Dosage: 100 MILLIGRAM
     Route: 065
     Dates: start: 20180731
  15. METFORMIN HYDROCHLORIDE [Concomitant]
     Active Substance: METFORMIN HYDROCHLORIDE
     Indication: Product used for unknown indication
     Dosage: 500 MILLIGRAM
     Route: 065
     Dates: start: 20190313
  16. TENELIGLIPTIN [Concomitant]
     Active Substance: TENELIGLIPTIN
     Indication: Product used for unknown indication
     Dosage: 20 MILLIGRAM
     Route: 065
     Dates: start: 20190313

REACTIONS (1)
  - Diabetes mellitus [Recovering/Resolving]

NARRATIVE: CASE EVENT DATE: 20180725
